FAERS Safety Report 21698832 (Version 2)
Quarter: 2022Q4

REPORT INFORMATION
  Report Type: Spontaneous
  Country: CN (occurrence: CN)
  Receive Date: 20221208
  Receipt Date: 20221213
  Transmission Date: 20230113
  Serious: Yes (Other)
  Sender: FDA-Public Use
  Company Number: CN-GALDERMA-CN2022017319

PATIENT

DRUGS (1)
  1. BENZOYL PEROXIDE [Suspect]
     Active Substance: BENZOYL PEROXIDE
     Dosage: 1 DOSAGE FORM
     Route: 061
     Dates: start: 20221103, end: 20221104

REACTIONS (4)
  - Erythema multiforme [Recovering/Resolving]
  - Skin discharge [Recovering/Resolving]
  - Pruritus [Recovering/Resolving]
  - Erythema [Recovering/Resolving]

NARRATIVE: CASE EVENT DATE: 20221105
